FAERS Safety Report 4677625-1 (Version None)
Quarter: 2005Q2

REPORT INFORMATION
  Report Type: 
  Country: None (occurrence: None)
  Receive Date: 20050526
  Receipt Date: 20050526
  Transmission Date: 20051028
  Serious: Yes (Other)
  Sender: FDA-Public Use
  Company Number: None

PATIENT
  Age: 21 Year
  Sex: Female

DRUGS (1)
  1. DOXYCYCLINE HYLATE [Suspect]
     Dosage: PO 100MG BID
     Route: 048
     Dates: start: 20050406, end: 20050413

REACTIONS (1)
  - PARAESTHESIA [None]
